FAERS Safety Report 25904196 (Version 2)
Quarter: 2025Q4

REPORT INFORMATION
  Report Type: Spontaneous
  Country: US (occurrence: US)
  Receive Date: 20251010
  Receipt Date: 20251104
  Transmission Date: 20260118
  Serious: No
  Sender: CIPLA
  Company Number: US-CIPLA LTD.-2025US12283

PATIENT

DRUGS (5)
  1. ALBUTEROL [Suspect]
     Active Substance: ALBUTEROL
     Indication: Asthma exercise induced
     Dosage: 180 MICROGRAM, (2 PUFFS), ONCE A DAY, BEFORE EXERCISE AS REQUIRED (PRN), REGULAR USER
     Dates: start: 2021
  2. ALBUTEROL [Suspect]
     Active Substance: ALBUTEROL
     Dosage: 180 MICROGRAM,(2 PUFFS), ONCE A DAY, BEFORE EXERCISE AS REQUIRED (PRN)
     Dates: start: 202505, end: 2025
  3. ALBUTEROL [Suspect]
     Active Substance: ALBUTEROL
     Dosage: 180 MICROGRAM,(2 PUFFS), ONCE A DAY, BEFORE EXERCISE AS REQUIRED (PRN) (NEW INHALER)
     Dates: start: 2025
  4. FLUOREN [Concomitant]
     Indication: Hypersensitivity
     Dosage: 2 DOSAGE FORM (2 SPRAYS), BID
     Route: 065
  5. OMEPRAZOLE [Concomitant]
     Active Substance: OMEPRAZOLE
     Indication: Gastrooesophageal reflux disease
     Dosage: UNK, QD (ONCE DAILY)
     Route: 065

REACTIONS (3)
  - Drug dose omission by device [Unknown]
  - Device delivery system issue [Unknown]
  - Wrong technique in product usage process [Unknown]

NARRATIVE: CASE EVENT DATE: 20250801
